FAERS Safety Report 21929746 (Version 4)
Quarter: 2025Q1

REPORT INFORMATION
  Report Type: Report from Study
  Country: US (occurrence: US)
  Receive Date: 20230131
  Receipt Date: 20250103
  Transmission Date: 20250408
  Serious: No
  Sender: PFIZER
  Company Number: US-GBT-019566

PATIENT
  Age: 34 Year
  Sex: Female

DRUGS (13)
  1. VOXELOTOR [Suspect]
     Active Substance: VOXELOTOR
     Indication: Haemoglobin abnormal
     Dosage: 1500 MG, 1X/DAY
     Route: 048
     Dates: start: 20200321, end: 20221124
  2. VOXELOTOR [Suspect]
     Active Substance: VOXELOTOR
     Indication: Sickle cell disease
  3. OXYCODONE [Concomitant]
     Active Substance: OXYCODONE
     Indication: Pain
     Dosage: 5 MG, 1X/DAY
     Route: 048
     Dates: start: 2019
  4. IBUPROFEN [Concomitant]
     Active Substance: IBUPROFEN
     Route: 048
     Dates: start: 20210202
  5. VALACYCLOVIR HYDROCHLORIDE [Concomitant]
     Active Substance: VALACYCLOVIR HYDROCHLORIDE
     Dosage: 1 G, 1X/DAY
     Route: 048
     Dates: start: 20210820
  6. TOBRADEX [Concomitant]
     Active Substance: DEXAMETHASONE\TOBRAMYCIN
     Dosage: 2 DROPS, 2X/DAY
     Route: 047
     Dates: start: 2022, end: 2022
  7. ZAFEMY [Concomitant]
     Active Substance: ETHINYL ESTRADIOL\NORELGESTROMIN
     Indication: Contraception
     Dosage: 1 PATCH, WEEKLY
     Dates: start: 202112
  8. LINZESS [Concomitant]
     Active Substance: LINACLOTIDE
     Route: 048
     Dates: start: 202201
  9. ASPIRIN [Concomitant]
     Active Substance: ASPIRIN
  10. VITAMIN D2 [Concomitant]
     Active Substance: ERGOCALCIFEROL
  11. FOLIC ACID [Concomitant]
     Active Substance: FOLIC ACID
  12. HYDROXYUREA [Concomitant]
     Active Substance: HYDROXYUREA
  13. GABAPENTIN [Concomitant]
     Active Substance: GABAPENTIN

REACTIONS (1)
  - Maternal exposure during pregnancy [Unknown]
